FAERS Safety Report 18244335 (Version 4)
Quarter: 2021Q4

REPORT INFORMATION
  Report Type: Spontaneous
  Country: DE (occurrence: DE)
  Receive Date: 20200909
  Receipt Date: 20211018
  Transmission Date: 20220303
  Serious: Yes (Other)
  Sender: FDA-Public Use
  Company Number: DE-002147023-NVSC2020DE236390

PATIENT
  Sex: Female
  Weight: 53 kg

DRUGS (3)
  1. LETROZOLE [Suspect]
     Active Substance: LETROZOLE
     Indication: Breast cancer metastatic
     Dosage: 2.5 MILLIGRAM, ONCE A DAY (2.5 MG, QD)
     Route: 048
     Dates: start: 20200529
  2. KISQALI [Suspect]
     Active Substance: RIBOCICLIB
     Indication: Breast cancer metastatic
     Dosage: 600 MILLIGRAM, EVERY WEEK (200 MG, QD (21 DAYS INTAKE, 7 DAYS PAUSE)
     Route: 048
     Dates: start: 20200529, end: 20200608
  3. KISQALI [Suspect]
     Active Substance: RIBOCICLIB
     Dosage: 1200 MILLIGRAM, EVERY WEEK, 400 MG, QW3 (21 DAYS INTAKE, 7 DAYS PAUSE)
     Route: 048
     Dates: start: 20200609, end: 20200824

REACTIONS (3)
  - Leukocytosis [Recovered/Resolved]
  - White blood cell count decreased [Unknown]
  - Leukopenia [Recovered/Resolved]

NARRATIVE: CASE EVENT DATE: 20200720
